FAERS Safety Report 7789906-3 (Version None)
Quarter: 2011Q3

REPORT INFORMATION
  Report Type: 
  Country: None (occurrence: None)
  Receive Date: 20110930
  Receipt Date: 20101014
  Transmission Date: 20111222
  Serious: No
  Sender: FDA-Public Use
  Company Number: US-ASTRAZENECA-2010SE48691

PATIENT
  Sex: Female
  Weight: 72.6 kg

DRUGS (4)
  1. PAXIL [Concomitant]
  2. SYNTHROID [Concomitant]
  3. VITAMIN TAB [Concomitant]
  4. ARIMIDEX [Suspect]
     Indication: BREAST CANCER
     Route: 048
     Dates: start: 20090701

REACTIONS (2)
  - TINNITUS [None]
  - OTOSCLEROSIS [None]
